FAERS Safety Report 12955731 (Version 1)
Quarter: 2016Q4

REPORT INFORMATION
  Report Type: Spontaneous
  Country: US (occurrence: US)
  Receive Date: 20161118
  Receipt Date: 20161118
  Transmission Date: 20170207
  Serious: No
  Sender: FDA-Public Use
  Company Number: US-BAYER-2016-220949

PATIENT
  Age: 68 Year
  Sex: Female
  Weight: 56.69 kg

DRUGS (2)
  1. DULCOLAX (DOCUSATE SODIUM) [Concomitant]
     Active Substance: DOCUSATE SODIUM
     Indication: COLONOSCOPY
     Dosage: 4 DF, UNK
  2. MIRALAX [Suspect]
     Active Substance: POLYETHYLENE GLYCOL 3350
     Indication: COLONOSCOPY
     Dosage: 238 G, UNK
     Route: 048
     Dates: start: 201611, end: 201611

REACTIONS (1)
  - Circumstance or information capable of leading to medication error [Unknown]
